FAERS Safety Report 6516969-5 (Version None)
Quarter: 2009Q4

REPORT INFORMATION
  Report Type: 
  Country: None (occurrence: None)
  Receive Date: 20091223
  Receipt Date: 20091218
  Transmission Date: 20100525
  Serious: Yes (Death, Other)
  Sender: FDA-Public Use
  Company Number: PHEH2009US18010

PATIENT
  Age: 20 Year
  Sex: Female
  Weight: 87.075 kg

DRUGS (18)
  1. TRILEPTAL [Suspect]
  2. OXCARBAZEPINE [Suspect]
  3. ALPRAZOLAM [Suspect]
  4. OXYCODONE [Suspect]
  5. ETHANOL [Suspect]
  6. ZOLOFT [Suspect]
  7. SERTRALINE HCL [Suspect]
  8. OPIOIDS [Suspect]
  9. BENZODIAZEPINES [Suspect]
  10. CAFFEINE [Suspect]
  11. NICOTINE [Suspect]
  12. ROXICODONE [Suspect]
  13. EXCEDRIN (MIGRAINE) [Suspect]
  14. PERCOCET [Suspect]
  15. NAPROXEN [Concomitant]
  16. ZOLPIDEM [Concomitant]
  17. TRAZODONE HCL [Concomitant]
  18. ADDERALL 10 [Concomitant]

REACTIONS (5)
  - BIPOLAR DISORDER [None]
  - DRUG TOXICITY [None]
  - INTENTIONAL DRUG MISUSE [None]
  - POLYSUBSTANCE DEPENDENCE [None]
  - SUBSTANCE ABUSE [None]
